FAERS Safety Report 18491324 (Version 2)
Quarter: 2020Q4

REPORT INFORMATION
  Report Type: Spontaneous
  Country: US (occurrence: US)
  Receive Date: 20201111
  Receipt Date: 20201215
  Transmission Date: 20210114
  Serious: Yes (Other)
  Sender: FDA-Public Use
  Company Number: NVSC2020US300359

PATIENT

DRUGS (9)
  1. BUPIVACAINE. [Suspect]
     Active Substance: BUPIVACAINE
     Indication: FOETAL EXPOSURE DURING PREGNANCY
     Dosage: 5 MG
     Route: 064
  2. FUROSEMIDE. [Suspect]
     Active Substance: FUROSEMIDE
     Indication: FOETAL EXPOSURE DURING PREGNANCY
     Dosage: 10 MG
     Route: 064
  3. DIPHENHYDRAMINE. [Suspect]
     Active Substance: DIPHENHYDRAMINE
     Indication: FOETAL EXPOSURE DURING PREGNANCY
     Dosage: 50 MG
     Route: 064
  4. FENTANYL. [Suspect]
     Active Substance: FENTANYL
     Indication: FOETAL EXPOSURE DURING PREGNANCY
     Dosage: 15 MG
     Route: 064
  5. NOREPINEPHRINE. [Suspect]
     Active Substance: NOREPINEPHRINE
     Indication: FOETAL EXPOSURE DURING PREGNANCY
     Dosage: 2 UG/MIN
     Route: 064
  6. EPHEDRINE. [Suspect]
     Active Substance: EPHEDRINE
     Indication: FOETAL EXPOSURE DURING PREGNANCY
     Dosage: 10 MG
     Route: 064
  7. MORPHINE [Suspect]
     Active Substance: MORPHINE
     Indication: FOETAL EXPOSURE DURING PREGNANCY
     Dosage: 200 UG
     Route: 064
  8. LIDOCAINE. [Suspect]
     Active Substance: LIDOCAINE
     Indication: FOETAL EXPOSURE DURING PREGNANCY
     Dosage: 2 PERCENT (15ML) OVER 23 MIN
     Route: 064
  9. PHENYLEPHRINE [Suspect]
     Active Substance: PHENYLEPHRINE HYDROCHLORIDE
     Indication: FOETAL EXPOSURE DURING PREGNANCY
     Dosage: 160 UG
     Route: 064

REACTIONS (2)
  - Premature baby [Unknown]
  - Foetal exposure during pregnancy [Unknown]
